FAERS Safety Report 10174322 (Version 1)
Quarter: 2014Q2

REPORT INFORMATION
  Report Type: Report from Study
  Country: US (occurrence: US)
  Receive Date: 20140515
  Receipt Date: 20140515
  Transmission Date: 20141212
  Serious: Yes (Hospitalization)
  Sender: FDA-Public Use
  Company Number: US-SA-2014SA059137

PATIENT
  Sex: Female

DRUGS (4)
  1. LANTUS [Suspect]
     Indication: DIABETES MELLITUS
     Route: 065
     Dates: start: 2008
  2. LANTUS [Suspect]
     Indication: DIABETES MELLITUS
     Dosage: DOSE: 30 UNITS IN THE MORNING AND 45 UNITS AT NIGHT
     Route: 065
  3. LANTUS [Suspect]
     Indication: DIABETES MELLITUS
     Dosage: DOSE:10 UNIT(S)
     Route: 065
  4. NOVOLOG [Concomitant]
     Dosage: DOSE: 70/30

REACTIONS (2)
  - Hyperventilation [Unknown]
  - Blood glucose increased [Unknown]
